FAERS Safety Report 24120202 (Version 1)
Quarter: 2024Q3

REPORT INFORMATION
  Report Type: Spontaneous
  Country: BR (occurrence: BR)
  Receive Date: 20240722
  Receipt Date: 20240722
  Transmission Date: 20241016
  Serious: Yes (Other)
  Sender: ORGANON
  Company Number: BR-Merck-BR20240700222

PATIENT
  Age: 87 Year
  Sex: Female
  Weight: 156 kg

DRUGS (17)
  1. LOSARTAN POTASSIUM [Suspect]
     Active Substance: LOSARTAN POTASSIUM
     Indication: Hypertension
     Dosage: 5 MG 2 TABLETS EVERY 12 HOURS
     Route: 048
     Dates: start: 1993
  2. ZETIA [Suspect]
     Active Substance: EZETIMIBE
     Indication: Hypertension
     Dosage: 10MG 1 TABLET AT NIGHT, QPM
     Route: 048
  3. JANUVIA [Suspect]
     Active Substance: SITAGLIPTIN PHOSPHATE
     Indication: Type 2 diabetes mellitus
     Dosage: 100 MILLIGRAM, QD
     Route: 048
     Dates: start: 202406
  4. JANUVIA [Suspect]
     Active Substance: SITAGLIPTIN PHOSPHATE
     Dosage: HALF TABLET AFTER BREAKFAST, QD
     Route: 048
     Dates: start: 202406
  5. DEXILANT [Suspect]
     Active Substance: DEXLANSOPRAZOLE
     Dosage: UNK
     Dates: start: 20240107
  6. LEVOTHYROXINE [Concomitant]
     Active Substance: LEVOTHYROXINE\LEVOTHYROXINE SODIUM
     Indication: Hypothyroidism
     Dosage: UNK
     Dates: start: 2004
  7. LEVOTHYROXINE [Concomitant]
     Active Substance: LEVOTHYROXINE\LEVOTHYROXINE SODIUM
     Dosage: 1 TABLET WITH EMPTY STOMACH, QD
     Dates: start: 2018
  8. GLIMEPIRIDE [Concomitant]
     Active Substance: GLIMEPIRIDE
     Indication: Type 2 diabetes mellitus
     Dosage: HALF TABLET A DAY, QD
     Route: 048
  9. HYDROCHLOROTHIAZIDE [Concomitant]
     Active Substance: HYDROCHLOROTHIAZIDE
     Indication: Urinary tract disorder
     Dosage: 25MG 1 TABLET, QD
     Route: 048
     Dates: start: 1993
  10. HYDROCHLOROTHIAZIDE [Concomitant]
     Active Substance: HYDROCHLOROTHIAZIDE
     Indication: Hypertension
  11. DPREV [Concomitant]
     Indication: Vitamin supplementation
     Dosage: 1000 IU 1 TABLET AFTER LUNCH, QD
     Route: 048
  12. ESOMEPRAZOLE MAGNESIUM [Concomitant]
     Active Substance: ESOMEPRAZOLE MAGNESIUM
     Indication: Abdominal pain upper
     Dosage: 1 TABLET WITH EMPTY STOMACH 30 MINUTES BEFORE BREAKFAST, QD
     Route: 048
     Dates: start: 1994
  13. DULOXETINE HYDROCHLORIDE [Concomitant]
     Active Substance: DULOXETINE HYDROCHLORIDE
     Indication: Pain
     Dosage: 1 TABLET A DAY, QD
     Route: 048
  14. DIOSMIN [Concomitant]
     Active Substance: DIOSMIN
     Indication: Vitamin supplementation
     Dosage: 1 TABLET TWICE A DAY, BID
     Route: 048
  15. DOMPERIDONE [Concomitant]
     Active Substance: DOMPERIDONE
     Indication: Gastrooesophageal reflux disease
     Dosage: 3 TABLETS A DAY (BREAKFAST, LUNCH, AND DINNER), TID
     Route: 048
  16. CLOPIDOGREL BISULFATE [Concomitant]
     Active Substance: CLOPIDOGREL BISULFATE
     Indication: Vasodilatation
     Dosage: 75MG 1 TABLET PER DAY, QD
     Route: 048
     Dates: start: 2020
  17. OSCAL D [CALCIUM CARBONATE;COLECALCIFEROL] [Concomitant]
     Dosage: 1 CUP A DAY AFTER LUNCH USED SEASONALLY ACCORDING TO PHYSICIAN RECOMMENDATION, QD

REACTIONS (28)
  - Cholelithotomy [Unknown]
  - Lower limb fracture [Unknown]
  - Drug-induced liver injury [Unknown]
  - Abdominal pain [Unknown]
  - Influenza [Unknown]
  - Cough [Unknown]
  - Oropharyngeal pain [Unknown]
  - Bladder dysfunction [Unknown]
  - Fall [Unknown]
  - Ankle fracture [Unknown]
  - Oedema peripheral [Recovered/Resolved]
  - Muscular weakness [Unknown]
  - Muscle atrophy [Unknown]
  - Weight decreased [Unknown]
  - Aphonia [Recovered/Resolved with Sequelae]
  - Bedridden [Unknown]
  - Malaise [Unknown]
  - Tongue discolouration [Unknown]
  - Skin discolouration [Unknown]
  - Eye colour change [Unknown]
  - Toothache [Unknown]
  - Tooth injury [Unknown]
  - Blood pressure increased [Unknown]
  - Cough [Unknown]
  - Influenza [Unknown]
  - Product use issue [Unknown]
  - Product availability issue [Unknown]
  - Wrong product administered [Unknown]

NARRATIVE: CASE EVENT DATE: 20201219
